FAERS Safety Report 12328756 (Version 1)
Quarter: 2016Q2

REPORT INFORMATION
  Report Type: Spontaneous
  Country: US (occurrence: US)
  Receive Date: 20160503
  Receipt Date: 20160503
  Transmission Date: 20160815
  Serious: No
  Sender: FDA-Public Use
  Company Number: US-BEH-2015050568

PATIENT
  Sex: Female
  Weight: 83.3 kg

DRUGS (16)
  1. DIPHENHYDRAMINE. [Concomitant]
     Active Substance: DIPHENHYDRAMINE
     Route: 048
  2. ZYRTEC [Concomitant]
     Active Substance: CETIRIZINE HYDROCHLORIDE
     Dosage: 1 TAB QD
     Route: 048
  3. PERCOCET [Concomitant]
     Active Substance: ACETAMINOPHEN\OXYCODONE HYDROCHLORIDE
     Dosage: 1 TAB EVERY 8 HOURS
     Route: 048
  4. HIZENTRA [Suspect]
     Active Substance: HUMAN IMMUNOGLOBULIN G
     Route: 058
  5. LMX 4% [Concomitant]
     Dosage: APPLY PRIOR TO INFUSION
     Route: 061
  6. LORAZEPAM 0.5 MG [Concomitant]
     Active Substance: LORAZEPAM
     Dosage: 1 TAB PRN
     Route: 048
  7. ACETAMINOPHEN. [Concomitant]
     Active Substance: ACETAMINOPHEN
     Dosage: 325 MG AS DIRECTED
     Route: 048
  8. BUSPIRONE 10 MG [Concomitant]
     Dosage: 1 TABLET BID
     Route: 048
  9. MORPHINE 100 MG [Concomitant]
     Dosage: 1 TAB Q12H
     Route: 048
  10. HIZENTRA [Suspect]
     Active Substance: HUMAN IMMUNOGLOBULIN G
     Indication: IMMUNODEFICIENCY COMMON VARIABLE
     Route: 058
  11. EPIPEN [Concomitant]
     Active Substance: EPINEPHRINE
     Indication: ANAPHYLACTIC REACTION
     Dosage: 0.3 MG AS NEEDED
  12. KETORLAC 10 MG [Concomitant]
     Dosage: 1 TAB AS DIRECTED
  13. NADOLOL 80 MG [Concomitant]
     Dosage: 1.5 TAB DAILY
     Route: 048
  14. HYDROCHLOROTHIAZIDE 50MG [Concomitant]
     Dosage: 1 TAB QD
     Route: 048
  15. CELEXA [Concomitant]
     Active Substance: CITALOPRAM HYDROBROMIDE
     Dosage: 1 TAB QD
     Route: 048
  16. ALBUTEROL. [Concomitant]
     Active Substance: ALBUTEROL
     Dosage: 1 INHALATION PRN
     Route: 045

REACTIONS (1)
  - Urticaria [Not Recovered/Not Resolved]
